FAERS Safety Report 7815122-2 (Version None)
Quarter: 2011Q4

REPORT INFORMATION
  Report Type: 
  Country: None (occurrence: None)
  Receive Date: 20111014
  Receipt Date: 20111005
  Transmission Date: 20120403
  Serious: Yes (Other)
  Sender: FDA-Public Use
  Company Number: US-BAYER-2011-069992

PATIENT
  Age: 83 Year
  Sex: Male
  Weight: 96.599 kg

DRUGS (8)
  1. VITAMIN B COMPLEX CAP [Concomitant]
  2. VITAMIN B-12 [Concomitant]
  3. AVODART [Concomitant]
     Dosage: UNK
     Dates: start: 20110615
  4. ASPIRIN [Concomitant]
  5. CENTRUM SILVER [Concomitant]
  6. TAMSULOSIN HCL [Concomitant]
     Dosage: UNK
     Dates: start: 20110307
  7. IRON [Concomitant]
  8. SORAFENIB (RAF KINASE INHIBITOR) [Suspect]
     Indication: HEPATIC NEOPLASM MALIGNANT
     Dosage: 400 MG, BID
     Dates: start: 20110731, end: 20110815

REACTIONS (19)
  - MENTAL DISORDER [None]
  - DISTURBANCE IN ATTENTION [None]
  - ERYTHEMA [None]
  - GAIT DISTURBANCE [None]
  - FATIGUE [None]
  - PRURITUS [None]
  - ABDOMINAL PAIN [None]
  - MENTAL IMPAIRMENT [None]
  - MALAISE [None]
  - MOOD ALTERED [None]
  - RASH ERYTHEMATOUS [None]
  - CHEST PAIN [None]
  - NAUSEA [None]
  - JUDGEMENT IMPAIRED [None]
  - BALANCE DISORDER [None]
  - INSOMNIA [None]
  - ABASIA [None]
  - DYSPHONIA [None]
  - ASTHENIA [None]
